FAERS Safety Report 7620837-5 (Version None)
Quarter: 2011Q3

REPORT INFORMATION
  Report Type: 
  Country: None (occurrence: None)
  Receive Date: 20110719
  Receipt Date: 20110704
  Transmission Date: 20111222
  Serious: Yes (Hospitalization, Disabling, Other)
  Sender: FDA-Public Use
  Company Number: GB-WATSON-2011-02400

PATIENT
  Age: 53 Year
  Sex: Female

DRUGS (3)
  1. RISPERIDONE [Suspect]
     Indication: PSYCHOTIC DISORDER
     Dosage: UNK
     Route: 065
     Dates: start: 20040101, end: 20060101
  2. RISPERIDONE [Suspect]
     Indication: DEPRESSION
     Dosage: UNK
     Route: 065
     Dates: start: 19970101, end: 20030101
  3. QUETIAPINE [Concomitant]
     Indication: ILL-DEFINED DISORDER
     Dosage: UNK
     Route: 065

REACTIONS (18)
  - SCIATICA [None]
  - CARDIOMEGALY [None]
  - NONSPECIFIC REACTION [None]
  - DRUG DEPENDENCE [None]
  - LIVER INJURY [None]
  - PSYCHIATRIC SYMPTOM [None]
  - FEELING ABNORMAL [None]
  - AMNESIA [None]
  - MENTAL IMPAIRMENT [None]
  - HYPOAESTHESIA [None]
  - RENAL INJURY [None]
  - CONVERSION DISORDER [None]
  - DYSTONIA [None]
  - SUICIDE ATTEMPT [None]
  - ASTHENOPIA [None]
  - TREATMENT NONCOMPLIANCE [None]
  - MYOCARDIAL INFARCTION [None]
  - POSTURE ABNORMAL [None]
